FAERS Safety Report 18287920 (Version 1)
Quarter: 2020Q3

REPORT INFORMATION
  Report Type: Spontaneous
  Country: GB (occurrence: GB)
  Receive Date: 20200921
  Receipt Date: 20200921
  Transmission Date: 20201103
  Serious: Yes (Other)
  Sender: FDA-Public Use
  Company Number: GB-TEVA-2020-GB-1828951

PATIENT
  Age: 50 Year
  Sex: Male
  Weight: 74.38 kg

DRUGS (1)
  1. CIPROFLOXACIN. [Suspect]
     Active Substance: CIPROFLOXACIN
     Indication: TESTICULAR PAIN
     Dosage: UNIT DOSE : 1000 MILLIGRAM
     Route: 048
     Dates: start: 20200423, end: 20200506

REACTIONS (1)
  - Tendon pain [Not Recovered/Not Resolved]

NARRATIVE: CASE EVENT DATE: 20200503
